FAERS Safety Report 7356257-0 (Version None)
Quarter: 2011Q1

REPORT INFORMATION
  Report Type: 
  Country: None (occurrence: None)
  Receive Date: 20110316
  Receipt Date: 20110218
  Transmission Date: 20110831
  Serious: No
  Sender: FDA-Public Use
  Company Number: US-B.I. PHARMACEUTICALS,INC./RIDGEFIELD-2011-BP-05100BP

PATIENT
  Age: 78 Year
  Sex: Male

DRUGS (12)
  1. PRADAXA [Suspect]
     Indication: ATRIAL FIBRILLATION
     Dosage: 300 MG
     Route: 048
     Dates: start: 20110101
  2. CLARITIN [Concomitant]
     Indication: MULTIPLE ALLERGIES
     Dosage: 10 MG
  3. METOPROLOL SUCCINATE [Concomitant]
     Dosage: 150 MG
  4. SIMVASTATIN [Concomitant]
     Dosage: 20 MG
  5. FLUTICASONE PROPIONATE [Concomitant]
     Indication: EMPHYSEMA
  6. SPIRIVA [Concomitant]
     Indication: CHRONIC OBSTRUCTIVE PULMONARY DISEASE
     Dosage: 18 MCG
  7. MULTIPLE OTC VITAMINS AND MINERALS [Concomitant]
  8. OMEPRAZOLE [Concomitant]
  9. MULTAQ [Concomitant]
     Dosage: 400 MG
  10. FORADIL [Concomitant]
     Dosage: 24 MCG
  11. LISINOPRIL [Concomitant]
     Dosage: 20 MG
  12. MEDICATION NOT FURTHER SPECIFIED [Concomitant]

REACTIONS (1)
  - DYSPNOEA [None]
